FAERS Safety Report 17020494 (Version 2)
Quarter: 2019Q4

REPORT INFORMATION
  Report Type: Spontaneous
  Country: JP (occurrence: JP)
  Receive Date: 20191112
  Receipt Date: 20191211
  Transmission Date: 20200122
  Serious: Yes (Other)
  Sender: FDA-Public Use
  Company Number: JP-VIIV HEALTHCARE LIMITED-JP2019JPN202999

PATIENT
  Sex: Male

DRUGS (5)
  1. PREZISTA [Concomitant]
     Active Substance: DARUNAVIR ETHANOLATE
     Dosage: UNK
  2. ZIAGEN [Suspect]
     Active Substance: ABACAVIR SULFATE
     Dosage: UNK
     Route: 048
  3. EPIVIR [Suspect]
     Active Substance: LAMIVUDINE
     Dosage: UNK
     Route: 048
  4. RITONAVIR. [Concomitant]
     Active Substance: RITONAVIR
     Dosage: UNK
  5. RETROVIR [Suspect]
     Active Substance: ZIDOVUDINE
     Dosage: UNK
     Route: 048

REACTIONS (1)
  - Renal impairment [Unknown]
